FAERS Safety Report 14306816 (Version 3)
Quarter: 2018Q1

REPORT INFORMATION
  Report Type: Report from Study
  Country: None (occurrence: CA)
  Receive Date: 20171220
  Receipt Date: 20180115
  Transmission Date: 20180509
  Serious: Yes (Hospitalization)
  Sender: FDA-Public Use
  Company Number: CA-ABBVIE-17K-028-2196087-00

PATIENT
  Sex: Female

DRUGS (3)
  1. HUMIRA [Suspect]
     Active Substance: ADALIMUMAB
     Indication: ANKYLOSING SPONDYLITIS
     Route: 058
     Dates: start: 20170119, end: 201711
  2. HUMIRA [Suspect]
     Active Substance: ADALIMUMAB
     Route: 058
     Dates: start: 20180108
  3. CLINDAMYCIN. [Suspect]
     Active Substance: CLINDAMYCIN
     Indication: PARONYCHIA
     Route: 048
     Dates: start: 201712

REACTIONS (4)
  - Rash [Unknown]
  - Respiratory tract oedema [Unknown]
  - Localised infection [Recovered/Resolved]
  - Ingrowing nail [Unknown]

NARRATIVE: CASE EVENT DATE: 2017
